FAERS Safety Report 22017258 (Version 1)
Quarter: 2023Q1

REPORT INFORMATION
  Report Type: Spontaneous
  Country: US (occurrence: None)
  Receive Date: 20230221
  Receipt Date: 20230221
  Transmission Date: 20230418
  Serious: Yes (Death)
  Sender: FDA-Public Use
  Company Number: 2023A040826

PATIENT
  Age: 31 Year
  Sex: Female
  Weight: 51.3 kg

DRUGS (5)
  1. TAGRISSO [Suspect]
     Active Substance: OSIMERTINIB
     Indication: Lung neoplasm malignant
     Route: 048
     Dates: start: 20201003
  2. DRONABINOL [Concomitant]
     Active Substance: DRONABINOL
  3. CLARITIN [Concomitant]
     Active Substance: LORATADINE
  4. BIOTIN [Concomitant]
     Active Substance: BIOTIN
  5. ZOFRAN [Concomitant]
     Active Substance: ONDANSETRON HYDROCHLORIDE

REACTIONS (1)
  - Death [Fatal]

NARRATIVE: CASE EVENT DATE: 20230122
